FAERS Safety Report 11052658 (Version 2)
Quarter: 2015Q2

REPORT INFORMATION
  Report Type: Spontaneous
  Country: US (occurrence: US)
  Receive Date: 20150421
  Receipt Date: 20150525
  Transmission Date: 20150821
  Serious: No
  Sender: FDA-Public Use
  Company Number: US-JNJFOC-20140400918

PATIENT
  Age: 40 Year
  Sex: Male
  Weight: 77.11 kg

DRUGS (2)
  1. RISPERDAL CONSTA [Suspect]
     Active Substance: RISPERIDONE
     Indication: SCHIZOPHRENIA
     Route: 030
  2. RISPERDAL CONSTA [Suspect]
     Active Substance: RISPERIDONE
     Indication: SCHIZOPHRENIA
     Route: 030
     Dates: start: 20140328, end: 2014

REACTIONS (7)
  - Drug administration error [Unknown]
  - Abdominal pain [Not Recovered/Not Resolved]
  - Fear [Not Recovered/Not Resolved]
  - Treatment noncompliance [Unknown]
  - Drug dose omission [Unknown]
  - Dizziness [Not Recovered/Not Resolved]
  - Panic reaction [Not Recovered/Not Resolved]

NARRATIVE: CASE EVENT DATE: 20140328
